FAERS Safety Report 25514887 (Version 1)
Quarter: 2025Q3

REPORT INFORMATION
  Report Type: Spontaneous
  Country: US (occurrence: US)
  Receive Date: 20250703
  Receipt Date: 20250703
  Transmission Date: 20251020
  Serious: No
  Sender: RADIUS PHARM
  Company Number: US-RADIUS HEALTH INC.-2024US000567

PATIENT
  Sex: Female
  Weight: 43.991 kg

DRUGS (1)
  1. TYMLOS [Suspect]
     Active Substance: ABALOPARATIDE
     Indication: Osteoporosis
     Route: 058
     Dates: start: 20240125, end: 2024

REACTIONS (13)
  - Nausea [Recovered/Resolved]
  - Back pain [Unknown]
  - Abdominal pain [Unknown]
  - Malaise [Unknown]
  - Condition aggravated [Unknown]
  - Diverticulum intestinal [Unknown]
  - Gastritis [Unknown]
  - Colitis [Unknown]
  - Feeding disorder [Unknown]
  - Blood alkaline phosphatase increased [Recovered/Resolved]
  - Intentional dose omission [Unknown]
  - Weight decreased [Unknown]
  - Bedridden [Unknown]

NARRATIVE: CASE EVENT DATE: 20240101
